FAERS Safety Report 19209057 (Version 2)
Quarter: 2021Q2

REPORT INFORMATION
  Report Type: Spontaneous
  Country: CA (occurrence: CA)
  Receive Date: 20210503
  Receipt Date: 20210609
  Transmission Date: 20210717
  Serious: Yes (Other)
  Sender: FDA-Public Use
  Company Number: CA-PFIZER INC-2021299567

PATIENT
  Age: 70 Year
  Sex: Female

DRUGS (2)
  1. ESTRING [Suspect]
     Active Substance: ESTRADIOL
     Dosage: UNK
     Dates: start: 202103
  2. ESTRING [Suspect]
     Active Substance: ESTRADIOL
     Indication: UTERINE PROLAPSE
     Dosage: UNK

REACTIONS (6)
  - Off label use [Unknown]
  - Chromaturia [Unknown]
  - Urinary retention [Unknown]
  - Incorrect product administration duration [Unknown]
  - Pollakiuria [Unknown]
  - Drug ineffective for unapproved indication [Unknown]

NARRATIVE: CASE EVENT DATE: 202104
